FAERS Safety Report 22637860 (Version 1)
Quarter: 2023Q2

REPORT INFORMATION
  Report Type: Spontaneous
  Country: US (occurrence: None)
  Receive Date: 20230623
  Receipt Date: 20230623
  Transmission Date: 20230722
  Serious: Yes (Other)
  Sender: FDA-Public Use
  Company Number: None

PATIENT
  Age: 52 Year
  Sex: Male
  Weight: 87.75 kg

DRUGS (3)
  1. VUITY [Suspect]
     Active Substance: PILOCARPINE HYDROCHLORIDE
     Indication: Visual impairment
     Dosage: OTHER QUANTITY : 1 DROP(S);?
     Route: 047
     Dates: start: 20230621, end: 20230621
  2. IBUPROFEN [Concomitant]
     Active Substance: IBUPROFEN
  3. MELATONIN [Concomitant]
     Active Substance: MELATONIN

REACTIONS (8)
  - Nausea [None]
  - Dizziness [None]
  - Ocular discomfort [None]
  - Vision blurred [None]
  - Headache [None]
  - Hyperhidrosis [None]
  - Heart rate increased [None]
  - Impaired driving ability [None]

NARRATIVE: CASE EVENT DATE: 20230621
